FAERS Safety Report 9995944 (Version 1)
Quarter: 2014Q1

REPORT INFORMATION
  Report Type: Spontaneous
  Country: US (occurrence: US)
  Receive Date: 20140311
  Receipt Date: 20140311
  Transmission Date: 20141002
  Serious: Yes (Hospitalization)
  Sender: FDA-Public Use
  Company Number: US-BAYER-2014-034987

PATIENT
  Age: 44 Year
  Sex: Female
  Weight: 65.76 kg

DRUGS (2)
  1. YASMIN [Suspect]
  2. LEXAPRO [Concomitant]
     Dosage: 5 MG, LONG TERM USE

REACTIONS (2)
  - Basal ganglia stroke [None]
  - Cerebral infarction [None]
